FAERS Safety Report 14667775 (Version 12)
Quarter: 2019Q1

REPORT INFORMATION
  Report Type: Spontaneous
  Country: US (occurrence: US)
  Receive Date: 20180322
  Receipt Date: 20190228
  Transmission Date: 20190417
  Serious: No
  Sender: FDA-Public Use
  Company Number: US-PFIZER INC-2018117716

PATIENT
  Age: 60 Year
  Sex: Female
  Weight: 76 kg

DRUGS (14)
  1. LYRICA [Suspect]
     Active Substance: PREGABALIN
     Indication: NEURALGIA
     Dosage: 75 MG, TWICE DAILY
     Route: 048
  2. LYRICA [Suspect]
     Active Substance: PREGABALIN
     Dosage: 150 MG, THRICE DAILY
     Route: 048
     Dates: start: 20181119
  3. LYRICA [Suspect]
     Active Substance: PREGABALIN
     Dosage: 225 MG, TWICE DAILY
     Route: 048
     Dates: start: 2018, end: 2018
  4. LYRICA [Suspect]
     Active Substance: PREGABALIN
     Dosage: 150 MG, THRICE DAILY
     Route: 048
     Dates: start: 20190123
  5. DULOXETINE. [Concomitant]
     Active Substance: DULOXETINE
     Indication: FIBROMYALGIA
     Dosage: 30 MG, TWICE DAILY (ONCE IN THE MORNING AND ONCE AT NIGHT)
     Route: 048
  6. HYDROCODONE [Concomitant]
     Active Substance: HYDROCODONE
     Indication: PAIN
     Dosage: UNK, AS NEEDED (EVERY 4 HOURS WITH MAXIMUM OF 3 TABLETS PER DAY)
     Route: 048
  7. LYRICA [Suspect]
     Active Substance: PREGABALIN
     Indication: FIBROMYALGIA
     Dosage: 50 MG, UNK
     Route: 048
  8. DIAZEPAM. [Concomitant]
     Active Substance: DIAZEPAM
     Indication: MUSCLE SPASMS
     Dosage: 5 MG, AS NEEDED (AT BEDTIME)
     Route: 048
  9. OMEPRAZOLE. [Concomitant]
     Active Substance: OMEPRAZOLE
     Indication: ANXIETY
  10. OMEPRAZOLE. [Concomitant]
     Active Substance: OMEPRAZOLE
     Indication: GASTRIC PH DECREASED
     Dosage: 20 MG, ONCE DAILY (BEFORE MEAL)
     Route: 048
  11. TIZANIDINE. [Concomitant]
     Active Substance: TIZANIDINE
     Indication: PAIN
     Dosage: 4 MG, THRICE DAILY
     Route: 048
  12. FUROSEMIDE. [Concomitant]
     Active Substance: FUROSEMIDE
     Dosage: 40 MG, UNK
  13. LYRICA [Suspect]
     Active Substance: PREGABALIN
     Indication: PAIN IN EXTREMITY
     Dosage: 225 MG, TWICE DAILY
     Route: 048
     Dates: start: 201801, end: 2018
  14. DULOXETINE. [Concomitant]
     Active Substance: DULOXETINE
     Indication: GASTRIC PH DECREASED
     Dosage: 60 MG, ONCE DAILY
     Route: 048

REACTIONS (11)
  - Pain [Unknown]
  - Paraesthesia [Unknown]
  - Intentional product use issue [Unknown]
  - Abdominal pain upper [Unknown]
  - Headache [Unknown]
  - Product dispensing error [Unknown]
  - Abdominal tenderness [Unknown]
  - Weight increased [Not Recovered/Not Resolved]
  - Eating disorder [Not Recovered/Not Resolved]
  - Tremor [Unknown]
  - Diplopia [Unknown]

NARRATIVE: CASE EVENT DATE: 201801
